FAERS Safety Report 12409123 (Version 4)
Quarter: 2017Q2

REPORT INFORMATION
  Report Type: Spontaneous
  Country: DK (occurrence: DK)
  Receive Date: 20160526
  Receipt Date: 20170427
  Transmission Date: 20170830
  Serious: Yes (Hospitalization)
  Sender: FDA-Public Use
  Company Number: PHHY2016DK070044

PATIENT
  Sex: Female
  Weight: 71 kg

DRUGS (3)
  1. REMSIMA [Suspect]
     Active Substance: INFLIXIMAB
     Indication: RHEUMATOID ARTHRITIS
     Dosage: 300 MG, UNK
     Route: 042
     Dates: start: 20151019
  2. FOLIMET [Concomitant]
     Indication: PRODUCT USED FOR UNKNOWN INDICATION
     Route: 048
     Dates: start: 20051219
  3. METHOTREXATE (METHOTREXATE SODIUM) [Suspect]
     Active Substance: METHOTREXATE SODIUM
     Indication: RHEUMATOID ARTHRITIS
     Dosage: 15 MG, QW STYRKE: 2,5 MG
     Route: 048
     Dates: start: 20051219

REACTIONS (4)
  - Hypertension [Recovered/Resolved]
  - Product substitution issue [Unknown]
  - Polycythaemia [Recovered/Resolved]
  - Transient ischaemic attack [Recovered/Resolved]
